FAERS Safety Report 8124072-6 (Version None)
Quarter: 2012Q1

REPORT INFORMATION
  Report Type: 
  Country: None (occurrence: None)
  Receive Date: 20120209
  Receipt Date: 20120201
  Transmission Date: 20120608
  Serious: No
  Sender: FDA-Public Use
  Company Number: US-PFIZER INC-2012030515

PATIENT

DRUGS (5)
  1. TETRACYCLINE HCL [Suspect]
     Dosage: UNK
  2. LIPITOR [Suspect]
     Dosage: UNK
  3. PRILOSEC [Suspect]
     Dosage: UNK
  4. ALAVERT [Suspect]
     Dosage: UNK
  5. VIAGRA [Suspect]
     Indication: ERECTILE DYSFUNCTION
     Dosage: UNK

REACTIONS (1)
  - DRUG HYPERSENSITIVITY [None]
